FAERS Safety Report 17550497 (Version 3)
Quarter: 2020Q1

REPORT INFORMATION
  Report Type: Report from Study
  Country: CO (occurrence: CO)
  Receive Date: 20200317
  Receipt Date: 20200327
  Transmission Date: 20200409
  Serious: Yes (Death)
  Sender: FDA-Public Use
  Company Number: CO-TAKEDA-2020TUS014190

PATIENT
  Age: 24 Year
  Sex: Female
  Weight: 57 kg

DRUGS (2)
  1. FLUDARABINE [Concomitant]
     Active Substance: FLUDARABINE PHOSPHATE
     Dosage: 30 MILLIGRAM/SQ. METER, QD
     Route: 042
     Dates: start: 20200306, end: 20200309
  2. PONATINIB [Suspect]
     Active Substance: PONATINIB
     Indication: ACUTE LYMPHOCYTIC LEUKAEMIA
     Dosage: 45 MILLIGRAM, QD
     Route: 048
     Dates: start: 20200305, end: 20200309

REACTIONS (1)
  - Brain death [Fatal]

NARRATIVE: CASE EVENT DATE: 20200309
